FAERS Safety Report 6459932-5 (Version None)
Quarter: 2009Q4

REPORT INFORMATION
  Report Type: 
  Country: None (occurrence: None)
  Receive Date: 20091129
  Receipt Date: 20091116
  Transmission Date: 20100525
  Serious: Yes (Hospitalization, Other)
  Sender: FDA-Public Use
  Company Number: PHHY2009GR50414

PATIENT
  Age: 85 Year

DRUGS (4)
  1. EXELON [Suspect]
     Dosage: 4.6 MG/24 H
  2. EXELON [Suspect]
     Dosage: 9.5 MG/24 H
  3. EXELON [Suspect]
     Dosage: 6 MG DAILY
  4. EXELON [Suspect]
     Dosage: 9 MG DAILY

REACTIONS (8)
  - APPLICATION SITE PRURITUS [None]
  - APPLICATION SITE RASH [None]
  - BLISTER [None]
  - HYPERSENSITIVITY [None]
  - LYMPHOCYTIC INFILTRATION [None]
  - OEDEMA [None]
  - RASH MACULO-PAPULAR [None]
  - RASH PRURITIC [None]
